FAERS Safety Report 7691481-9 (Version None)
Quarter: 2011Q3

REPORT INFORMATION
  Report Type: 
  Country: None (occurrence: None)
  Receive Date: 20110818
  Receipt Date: 20110810
  Transmission Date: 20111222
  Serious: Yes (Life-Threatening, Hospitalization, Other)
  Sender: FDA-Public Use
  Company Number: AU-B.I. PHARMACEUTICALS,INC./RIDGEFIELD-2011-DE-04536GD

PATIENT
  Age: 51 Year
  Sex: Female
  Weight: 66 kg

DRUGS (2)
  1. CLONIDINE [Suspect]
     Indication: COMPLEX REGIONAL PAIN SYNDROME
     Dosage: 18000 MCG
  2. MORPHINE [Suspect]
     Indication: COMPLEX REGIONAL PAIN SYNDROME
     Dosage: 90 MG

REACTIONS (16)
  - BRADYCARDIA [None]
  - ACUTE MYOCARDIAL INFARCTION [None]
  - CARDIAC FAILURE [None]
  - HYPERTENSION [None]
  - PUPILS UNEQUAL [None]
  - LOSS OF CONSCIOUSNESS [None]
  - MYDRIASIS [None]
  - HYPOTENSION [None]
  - DRUG ADMINISTERED AT INAPPROPRIATE SITE [None]
  - CONFUSIONAL STATE [None]
  - HYPERHIDROSIS [None]
  - ACIDOSIS [None]
  - DYSPNOEA [None]
  - OVERDOSE [None]
  - VENTRICULAR DYSFUNCTION [None]
  - PULMONARY EMBOLISM [None]
